FAERS Safety Report 12723122 (Version 1)
Quarter: 2016Q3

REPORT INFORMATION
  Report Type: Spontaneous
  Country: US (occurrence: US)
  Receive Date: 20160908
  Receipt Date: 20160908
  Transmission Date: 20161109
  Serious: Yes (Other)
  Sender: FDA-Public Use
  Company Number: US-CIPLA LTD.-2016US17992

PATIENT

DRUGS (2)
  1. CELECOXIB. [Suspect]
     Active Substance: CELECOXIB
     Indication: PROPHYLAXIS
     Dosage: 400 MG, QD
     Route: 065
  2. SELENIUM [Suspect]
     Active Substance: SELENIUM
     Indication: PROPHYLAXIS
     Dosage: 200 MCG, DAILY AS SELENIZED YEAST
     Route: 065

REACTIONS (1)
  - Colorectal cancer [Unknown]
